FAERS Safety Report 5110728-6 (Version None)
Quarter: 2006Q3

REPORT INFORMATION
  Report Type: 
  Country: None (occurrence: None)
  Receive Date: 20060919
  Receipt Date: 20060901
  Transmission Date: 20061208
  Serious: Yes (Hospitalization, Other)
  Sender: FDA-Public Use
  Company Number: ENT 2006-0121

PATIENT
  Age: 83 Year
  Sex: Female
  Weight: 36.28 kg

DRUGS (15)
  1. COMTAN [Suspect]
     Indication: PARKINSON'S DISEASE
     Dosage: 800 MG, 4 IN 1 D, ORAL
     Route: 048
  2. AMANTADINE HCL [Suspect]
     Indication: PARKINSON'S DISEASE
     Dosage: 400 MG, 2 IN 1 D, ORAL (SEE IMAGE)
     Route: 048
     Dates: start: 20060401, end: 20060509
  3. AMANTADINE HCL [Suspect]
     Indication: PARKINSON'S DISEASE
     Dosage: 400 MG, 2 IN 1 D, ORAL (SEE IMAGE)
     Route: 048
     Dates: start: 20060509, end: 20060516
  4. AMANTADINE HCL [Suspect]
     Indication: PARKINSON'S DISEASE
     Dosage: 400 MG, 2 IN 1 D, ORAL (SEE IMAGE)
     Route: 048
     Dates: start: 20060516, end: 20060523
  5. SINEMET [Suspect]
     Indication: PARKINSON'S DISEASE
     Dosage: 25/250 MG, QID; ORAL
     Route: 048
     Dates: end: 20060501
  6. SINEMET [Suspect]
     Indication: PARKINSON'S DISEASE
     Dosage: 25/250 MG, QID; ORAL
     Route: 048
     Dates: start: 20060501
  7. MIRAPEX [Suspect]
     Indication: PARKINSON'S DISEASE
     Dosage: 2 MG, 4 IN 1 D; ORAL (SEE IMAGE)
     Route: 048
     Dates: end: 20060501
  8. MIRAPEX [Suspect]
     Indication: PARKINSON'S DISEASE
     Dosage: 2 MG, 4 IN 1 D; ORAL (SEE IMAGE)
     Route: 048
     Dates: start: 20060501
  9. PARCOPA (LEVODOPA-CARBIDOPA) (TABLET) [Suspect]
     Indication: PARKINSON'S DISEASE
     Dosage: SUBLINGUAL
     Route: 060
  10. ASPIRIN [Concomitant]
  11. PLETAL [Concomitant]
  12. PLAVIX [Concomitant]
  13. NORVASC [Concomitant]
  14. HYZAAR [Concomitant]
  15. DIGOXIN [Concomitant]

REACTIONS (7)
  - CONDITION AGGRAVATED [None]
  - CONVULSION [None]
  - DELIRIUM [None]
  - DELUSION [None]
  - HALLUCINATION [None]
  - NIGHTMARE [None]
  - PARKINSONISM [None]
